FAERS Safety Report 5623828-9 (Version None)
Quarter: 2008Q1

REPORT INFORMATION
  Report Type: 
  Country: None (occurrence: None)
  Receive Date: 20080207
  Receipt Date: 20080129
  Transmission Date: 20080703
  Serious: Yes (Death)
  Sender: FDA-Public Use
  Company Number: OPER20080013

PATIENT
  Age: 15 Year
  Sex: Male

DRUGS (3)
  1. OPANA ER [Suspect]
     Dosage: 45 TABLETS, PER ORAL
     Route: 048
     Dates: start: 20080125, end: 20080126
  2. RITALIN [Suspect]
     Indication: ATTENTION DEFICIT/HYPERACTIVITY DISORDER
     Dates: end: 20080126
  3. ANTIDEPRESSANTS [Concomitant]

REACTIONS (4)
  - EPISTAXIS [None]
  - INTENTIONAL DRUG MISUSE [None]
  - OVERDOSE [None]
  - UNRESPONSIVE TO STIMULI [None]
